FAERS Safety Report 19627587 (Version 2)
Quarter: 2022Q2

REPORT INFORMATION
  Report Type: Spontaneous
  Country: US (occurrence: US)
  Receive Date: 20210729
  Receipt Date: 20220414
  Transmission Date: 20220721
  Serious: Yes (Death, Other)
  Sender: FDA-Public Use
  Company Number: US-GLAXOSMITHKLINE-US2021GSK162569

PATIENT
  Sex: Male
  Weight: 103 kg

DRUGS (1)
  1. RANITIDINE HYDROCHLORIDE [Suspect]
     Active Substance: RANITIDINE HYDROCHLORIDE
     Indication: Dyspepsia
     Dosage: 150 MG
     Route: 065
     Dates: start: 2013, end: 2020

REACTIONS (6)
  - Bladder cancer [Fatal]
  - Transitional cell carcinoma [Unknown]
  - Bladder neoplasm [Unknown]
  - Bladder transitional cell carcinoma [Unknown]
  - Bladder neck obstruction [Unknown]
  - Bladder cancer stage 0, with cancer in situ [Unknown]
